FAERS Safety Report 9498486 (Version 1)
Quarter: 2013Q3

REPORT INFORMATION
  Report Type: Spontaneous
  Country: DK (occurrence: DK)
  Receive Date: 20130904
  Receipt Date: 20130904
  Transmission Date: 20140515
  Serious: Yes (Other)
  Sender: FDA-Public Use
  Company Number: DK-ACTAVIS-2013-15475

PATIENT
  Age: 65 Year
  Sex: Female

DRUGS (5)
  1. EPIRUBICIN (UNKNOWN) [Suspect]
     Indication: INVASIVE LOBULAR BREAST CARCINOMA
     Dosage: MAKSIMALE DOSIS GIVET. I ALT 15 CEF KURE GIVET
     Route: 065
     Dates: start: 2002, end: 20030522
  2. CYCLOPHOSPHAMIDE [Concomitant]
     Indication: INVASIVE LOBULAR BREAST CARCINOMA
     Dosage: I ALT 15 CEF KURE GIVET
     Route: 065
     Dates: start: 2002, end: 20030522
  3. FLUOROURACIL [Concomitant]
     Indication: INVASIVE LOBULAR BREAST CARCINOMA
     Dosage: I ALT 15 CEF KURE GIVET
     Route: 065
     Dates: start: 2002, end: 20030522
  4. ARIMIDEX [Concomitant]
     Indication: INVASIVE LOBULAR BREAST CARCINOMA
     Dosage: UNK
     Route: 065
     Dates: start: 2003, end: 201108
  5. LETROZOLE [Concomitant]
     Indication: INVASIVE LOBULAR BREAST CARCINOMA
     Dosage: UNK
     Route: 065
     Dates: start: 201110

REACTIONS (7)
  - Cardiac failure [Unknown]
  - Dyspnoea exertional [Unknown]
  - Pulmonary function test decreased [Unknown]
  - Impaired work ability [Unknown]
  - Quality of life decreased [Unknown]
  - Pain [Unknown]
  - Mobility decreased [Unknown]
